FAERS Safety Report 6911964-6 (Version None)
Quarter: 2010Q3

REPORT INFORMATION
  Report Type: 
  Country: None (occurrence: None)
  Receive Date: 20100806
  Receipt Date: 20080103
  Transmission Date: 20110219
  Serious: No
  Sender: FDA-Public Use
  Company Number: US-PFIZER INC-2007070986

PATIENT
  Sex: Female

DRUGS (4)
  1. GLIPIZIDE [Suspect]
     Indication: DIABETES MELLITUS
     Dates: start: 20060101, end: 20070801
  2. GLUCOTROL XL [Suspect]
  3. INSULIN [Concomitant]
  4. DRUG, UNSPECIFIED [Concomitant]

REACTIONS (6)
  - BLOOD GLUCOSE INCREASED [None]
  - CONSTIPATION [None]
  - EMOTIONAL DISORDER [None]
  - MEDICATION ERROR [None]
  - PRODUCT QUALITY ISSUE [None]
  - STRESS [None]
